FAERS Safety Report 6244040-9 (Version None)
Quarter: 2009Q2

REPORT INFORMATION
  Report Type: 
  Country: None (occurrence: None)
  Receive Date: 20090625
  Receipt Date: 20071121
  Transmission Date: 20091009
  Serious: Yes (Other)
  Sender: FDA-Public Use
  Company Number: US-ASTRAZENECA-2006UW22837

PATIENT
  Age: 14362 Day
  Sex: Male

DRUGS (15)
  1. SEROQUEL [Suspect]
     Indication: DEPRESSION
     Route: 048
     Dates: start: 20030701
  2. SEROQUEL [Suspect]
     Indication: INSOMNIA
     Route: 048
     Dates: start: 20030701
  3. SEROQUEL [Suspect]
     Indication: ANXIETY
     Route: 048
     Dates: start: 20030701
  4. SEROQUEL [Suspect]
     Route: 048
     Dates: start: 20060828
  5. SEROQUEL [Suspect]
     Route: 048
     Dates: start: 20060828
  6. SEROQUEL [Suspect]
     Route: 048
     Dates: start: 20060828
  7. PROPOXYPHENE NAPSYLATE W/ ACETAMINOPHEN [Concomitant]
     Dosage: STRENGTH 100-160 MG
     Dates: start: 20060803
  8. METOPROLOL TARTRATE [Concomitant]
     Dates: start: 20060802
  9. FLUCONAZOLE [Concomitant]
     Dates: start: 20060801
  10. PREVACID [Concomitant]
     Dates: start: 20060816
  11. FUROSEMIDE [Concomitant]
     Dosage: STRENGTH 20MG, 40MG
     Dates: start: 20050606
  12. PAROXETINE HCL [Concomitant]
     Dosage: STRENGTH- 20MG, 40MG
     Dates: start: 20050606
  13. CEPHALEXIN [Concomitant]
     Dates: start: 20061116
  14. AVINZA [Concomitant]
     Dates: start: 20070416
  15. DILTIAZEM [Concomitant]
     Dates: start: 20050605

REACTIONS (5)
  - DIABETES MELLITUS [None]
  - DIABETIC EYE DISEASE [None]
  - DIABETIC NEUROPATHY [None]
  - DIABETIC RETINOPATHY [None]
  - HYPOGLYCAEMIA [None]
